FAERS Safety Report 10819503 (Version 2)
Quarter: 2016Q2

REPORT INFORMATION
  Report Type: Report from Study
  Country: NZ (occurrence: NZ)
  Receive Date: 20150218
  Receipt Date: 20160401
  Transmission Date: 20160815
  Serious: Yes (Hospitalization, Other)
  Sender: FDA-Public Use
  Company Number: NZ-ABBVIE-15K-118-1346381-00

PATIENT
  Age: 61 Year
  Sex: Female

DRUGS (1)
  1. HUMIRA [Suspect]
     Active Substance: ADALIMUMAB
     Indication: RHEUMATOID ARTHRITIS
     Route: 065
     Dates: start: 20150114, end: 201504

REACTIONS (8)
  - Diarrhoea [Not Recovered/Not Resolved]
  - C-reactive protein increased [Recovering/Resolving]
  - Myalgia [Unknown]
  - Spinal disorder [Unknown]
  - Arthralgia [Unknown]
  - Dysstasia [Unknown]
  - Neuralgia [Unknown]
  - Malaise [Recovering/Resolving]

NARRATIVE: CASE EVENT DATE: 20150114
